FAERS Safety Report 6203959-5 (Version None)
Quarter: 2009Q2

REPORT INFORMATION
  Report Type: 
  Country: None (occurrence: None)
  Receive Date: 20090527
  Receipt Date: 20090518
  Transmission Date: 20091009
  Serious: Yes (Other)
  Sender: FDA-Public Use
  Company Number: B0566673A

PATIENT
  Sex: Female
  Weight: 29 kg

DRUGS (4)
  1. RELENZA [Suspect]
     Indication: INFLUENZA
     Dosage: 10MG TWICE PER DAY
     Route: 055
     Dates: start: 20090309, end: 20090313
  2. PERIACTIN [Concomitant]
     Dosage: 16.5MG PER DAY
     Route: 048
     Dates: start: 20090309, end: 20090313
  3. MUCODYNE [Concomitant]
     Dosage: 750MG PER DAY
     Route: 048
     Dates: start: 20090309, end: 20090313
  4. ASVERIN [Concomitant]
     Dosage: 60MG PER DAY
     Route: 048
     Dates: start: 20090309, end: 20090313

REACTIONS (1)
  - ABNORMAL BEHAVIOUR [None]
